FAERS Safety Report 8091450-3 (Version None)
Quarter: 2012Q1

REPORT INFORMATION
  Report Type: 
  Country: None (occurrence: None)
  Receive Date: 20120129
  Receipt Date: 20111206
  Transmission Date: 20120608
  Serious: No
  Sender: FDA-Public Use
  Company Number: PR-ABBOTT-11P-131-0881284-00

PATIENT
  Sex: Female

DRUGS (1)
  1. HUMIRA [Suspect]
     Indication: PSORIASIS
     Route: 058

REACTIONS (6)
  - BLISTER [None]
  - ERYTHEMA [None]
  - PAIN IN EXTREMITY [None]
  - PRURITUS [None]
  - ABDOMINAL PAIN [None]
  - PSORIASIS [None]
